FAERS Safety Report 25022448 (Version 2)
Quarter: 2025Q1

REPORT INFORMATION
  Report Type: Spontaneous
  Country: US (occurrence: US)
  Receive Date: 20250228
  Receipt Date: 20250228
  Transmission Date: 20250408
  Serious: Yes (Hospitalization)
  Sender: RIGEL PHARMACEUTICALS
  Company Number: US-RIGEL PHARMACEUTICALS, INC.-20250100186

PATIENT
  Age: 50 Year
  Sex: Female
  Weight: 56.245 kg

DRUGS (2)
  1. GAVRETO [Suspect]
     Active Substance: PRALSETINIB
     Indication: Thyroid cancer
     Dosage: 300 MG, QD
     Route: 048
     Dates: start: 202407
  2. GAVRETO [Suspect]
     Active Substance: PRALSETINIB
     Dosage: 300 MG, QD
     Route: 048
     Dates: start: 20240717

REACTIONS (6)
  - Hospitalisation [Unknown]
  - Pain [Unknown]
  - Radiation injury [Unknown]
  - Product prescribing issue [Unknown]
  - Blood pressure increased [Recovered/Resolved]
  - Arthralgia [Unknown]

NARRATIVE: CASE EVENT DATE: 20240717
